FAERS Safety Report 23748614 (Version 1)
Quarter: 2024Q2

REPORT INFORMATION
  Report Type: Spontaneous
  Country: US (occurrence: US)
  Receive Date: 20240416
  Receipt Date: 20240416
  Transmission Date: 20240716
  Serious: No
  Sender: FDA-Public Use
  Company Number: US-AMGEN-USASP2024075310

PATIENT
  Sex: Female

DRUGS (2)
  1. REPATHA [Suspect]
     Active Substance: EVOLOCUMAB
     Indication: Product used for unknown indication
     Dosage: 140 MILLIGRAM
     Route: 065
  2. HIZENTRA [Concomitant]
     Active Substance: HUMAN IMMUNOGLOBULIN G
     Indication: Immunoglobulin therapy
     Dosage: 6 GRAM, QWK (20%)
     Route: 058

REACTIONS (1)
  - Product communication issue [Unknown]
